FAERS Safety Report 14747292 (Version 5)
Quarter: 2020Q3

REPORT INFORMATION
  Report Type: Spontaneous
  Country: US (occurrence: US)
  Receive Date: 20180411
  Receipt Date: 20200825
  Transmission Date: 20201102
  Serious: Yes (Death, Hospitalization, Other)
  Sender: FDA-Public Use
  Company Number: US-VIFOR (INTERNATIONAL) INC.-VIT-2018-03371

PATIENT
  Age: 88 Year
  Sex: Male

DRUGS (21)
  1. BAYER LOW DOSE [Concomitant]
     Active Substance: ASPIRIN
  2. DILTIAZEM HYDROCHLORIDE. [Concomitant]
     Active Substance: DILTIAZEM HYDROCHLORIDE
  3. VELTASSA [Suspect]
     Active Substance: PATIROMER
     Indication: HYPERKALAEMIA
     Route: 048
     Dates: start: 20160510
  4. ASPIRIN. [Concomitant]
     Active Substance: ASPIRIN
  5. FENOFIBRATE. [Concomitant]
     Active Substance: FENOFIBRATE
  6. NITROSTAT [Concomitant]
     Active Substance: NITROGLYCERIN
  7. VITAMIN B12 [Concomitant]
     Active Substance: CYANOCOBALAMIN
  8. VITAMIN D3 [Concomitant]
     Active Substance: CHOLECALCIFEROL
  9. ATORVASTATIN [Concomitant]
     Active Substance: ATORVASTATIN
  10. CALCIUM [Concomitant]
     Active Substance: CALCIUM
  11. FLONASE [Concomitant]
     Active Substance: FLUTICASONE PROPIONATE
  12. VITAMIN E [Concomitant]
     Active Substance: .ALPHA.-TOCOPHEROL
  13. VALSARTAN. [Concomitant]
     Active Substance: VALSARTAN
  14. ALIGN [Concomitant]
     Active Substance: BIFIDOBACTERIUM LONGUM SUBSP. INFANTIS
  15. TURMERIC [Concomitant]
     Active Substance: HERBALS\TURMERIC
  16. DIGOXIN. [Concomitant]
     Active Substance: DIGOXIN
  17. ENALAPRIL MALEATE. [Concomitant]
     Active Substance: ENALAPRIL MALEATE
  18. LUPRON DEPOT [Concomitant]
     Active Substance: LEUPROLIDE ACETATE
  19. PLAVIX [Concomitant]
     Active Substance: CLOPIDOGREL BISULFATE
  20. COENZYME Q10 [Concomitant]
     Active Substance: DIETARY SUPPLEMENT\UBIDECARENONE
  21. FUROSEMIDE. [Concomitant]
     Active Substance: FUROSEMIDE

REACTIONS (6)
  - Fall [Unknown]
  - Death [Fatal]
  - Haemoglobin decreased [Unknown]
  - Internal haemorrhage [Unknown]
  - Off label use [Unknown]
  - Product dose omission issue [Unknown]

NARRATIVE: CASE EVENT DATE: 20160510
